FAERS Safety Report 5249250-5 (Version None)
Quarter: 2007Q1

REPORT INFORMATION
  Report Type: 
  Country: None (occurrence: None)
  Receive Date: 20070223
  Receipt Date: 20070207
  Transmission Date: 20070707
  Serious: Yes (Death)
  Sender: FDA-Public Use
  Company Number: GXKR2007DE01561

PATIENT
  Age: 56 Year
  Sex: Female

DRUGS (6)
  1. CYCLOSPORINE [Suspect]
     Indication: PROPHYLAXIS
     Dosage: 5 MG/KG, QD
  2. METHOTREXATE [Suspect]
     Indication: PROPHYLAXIS
     Dosage: 15 MG, 3 DOSES, INTRATHECAL
     Route: 037
  3. FLUDARABINE PHOSPHATE [Suspect]
     Dosage: 30 MG/M2, DAYS -9 TO -5
  4. MYCOPHENOLATE MOFETIL [Suspect]
     Indication: PROPHYLAXIS
  5. CARMUSTINE [Concomitant]
  6. MELPHALAN [Concomitant]

REACTIONS (12)
  - COMA [None]
  - CONVULSION [None]
  - EXTENSOR PLANTAR RESPONSE [None]
  - EYELID PTOSIS [None]
  - HYPERTENSION [None]
  - LEUKOENCEPHALOPATHY [None]
  - MUCOSAL INFLAMMATION [None]
  - MUSCULAR WEAKNESS [None]
  - PHAGOCYTOSIS [None]
  - PYREXIA [None]
  - RENAL IMPAIRMENT [None]
  - SOMNOLENCE [None]
